FAERS Safety Report 4291010-6 (Version None)
Quarter: 2004Q1

REPORT INFORMATION
  Report Type: 
  Country: None (occurrence: None)
  Receive Date: 20040211
  Receipt Date: 20031027
  Transmission Date: 20041129
  Serious: No
  Sender: FDA-Public Use
  Company Number: US-GLAXOSMITHKLINE-A0431812A

PATIENT
  Sex: Female

DRUGS (1)
  1. PAXIL [Suspect]
     Dates: start: 20010101, end: 20030101

REACTIONS (3)
  - AMNESIA [None]
  - LETHARGY [None]
  - SOMNOLENCE [None]
